FAERS Safety Report 4950148-8 (Version None)
Quarter: 2006Q1

REPORT INFORMATION
  Report Type: 
  Country: None (occurrence: None)
  Receive Date: 20060316
  Receipt Date: 20060306
  Transmission Date: 20060701
  Serious: Yes (Death)
  Sender: FDA-Public Use
  Company Number: 2006027235

PATIENT
  Age: 23 Year
  Sex: Male

DRUGS (4)
  1. ZELDOX (CAPSULES)  (ZIPRASIDONE) [Suspect]
     Indication: AGITATION
     Dosage: 60 MG (20 MG, 3 IN 1 D) ORAL
     Route: 048
     Dates: start: 20060222
  2. METHADONE HCL [Concomitant]
  3. TRILEPTAL [Concomitant]
  4. REMERON [Concomitant]

REACTIONS (3)
  - CARDIAC ARREST [None]
  - INCREASED BRONCHIAL SECRETION [None]
  - PAIN [None]
